FAERS Safety Report 5719529-9 (Version None)
Quarter: 2008Q2

REPORT INFORMATION
  Report Type: 
  Country: None (occurrence: None)
  Receive Date: 20080423
  Receipt Date: 20080221
  Transmission Date: 20081010
  Serious: Yes (Hospitalization)
  Sender: FDA-Public Use
  Company Number: 256524

PATIENT

DRUGS (1)
  1. AVASTIN [Suspect]
     Indication: GLIOMA

REACTIONS (1)
  - PULMONARY EMBOLISM [None]
